FAERS Safety Report 14418758 (Version 1)
Quarter: 2018Q1

REPORT INFORMATION
  Report Type: Report from Study
  Country: RU (occurrence: RU)
  Receive Date: 20180122
  Receipt Date: 20180122
  Transmission Date: 20180509
  Serious: Yes (Other)
  Sender: FDA-Public Use
  Company Number: RU-TEVA-2018-RU-850515

PATIENT
  Age: 18 Year
  Sex: Female
  Weight: 60 kg

DRUGS (5)
  1. IFOSFAMIDE. [Suspect]
     Active Substance: IFOSFAMIDE
     Dosage: 5010 MILLIGRAM DAILY; DATE OF LAST DOSE PRIOR TO SAE ONSET: 28-FEB-2016
     Route: 042
     Dates: start: 20160226
  2. VINCRISTINE [Suspect]
     Active Substance: VINCRISTINE
     Dosage: 2 MILLIGRAM DAILY; DATE OF LAST DOSE PRIOR TO SAE ONSET: 26-FEB-2016
     Route: 042
     Dates: start: 20160226
  3. ETOPOSIDE. [Suspect]
     Active Substance: ETOPOSIDE
     Dosage: 250.5 MILLIGRAM DAILY; DATE OF LAST DOSE PRIOR TO SAE ONSET: 28-FEB-2016
     Route: 042
     Dates: start: 20160226
  4. LONQUEX [Suspect]
     Active Substance: LIPEGFILGRASTIM
     Indication: PROPHYLAXIS
     Dosage: 6 MILLIGRAM DAILY; DATE OF LAST DOSE PRIOR TO SAE ONSET: 29-FEB-2016
     Route: 058
     Dates: start: 20151221
  5. DOXORUBICIN [Suspect]
     Active Substance: DOXORUBICIN
     Dosage: 33.4 MILLIGRAM DAILY; DATE OF LAST DOSE PRIOR TO SAE ONSET: 28-FEB-2016
     Route: 042
     Dates: start: 20160226

REACTIONS (1)
  - Lymphopenia [Recovered/Resolved with Sequelae]

NARRATIVE: CASE EVENT DATE: 20160306
